FAERS Safety Report 9632769 (Version 1)
Quarter: 2013Q4

REPORT INFORMATION
  Report Type: Spontaneous
  Country: US (occurrence: US)
  Receive Date: 20131018
  Receipt Date: 20131018
  Transmission Date: 20140711
  Serious: Yes (Other)
  Sender: FDA-Public Use
  Company Number: US-PFIZER INC-2013296773

PATIENT
  Age: 71 Year
  Sex: Female
  Weight: 51.25 kg

DRUGS (7)
  1. LYRICA [Suspect]
     Indication: FIBROMYALGIA
     Dosage: 50 MG, 2X/DAY
  2. LYRICA [Suspect]
     Indication: PAIN
     Dosage: 100 MG, 2X/DAY
  3. LYRICA [Suspect]
     Dosage: UNK
  4. DEXILANT [Suspect]
     Indication: IMPAIRED GASTRIC EMPTYING
     Dosage: 60 MG, 1X/DAY
  5. DOMPERIDONE [Suspect]
     Indication: IMPAIRED GASTRIC EMPTYING
     Dosage: 10 MG, 2X/DAY
  6. XANAX [Concomitant]
     Dosage: 1 MG, 1X/DAY
  7. ZOLPIDEM [Concomitant]
     Dosage: 10 MG, 1X/DAY

REACTIONS (10)
  - Abasia [Not Recovered/Not Resolved]
  - Drug ineffective [Unknown]
  - Amnesia [Not Recovered/Not Resolved]
  - Alopecia [Not Recovered/Not Resolved]
  - Vision blurred [Not Recovered/Not Resolved]
  - Weight decreased [Not Recovered/Not Resolved]
  - Anxiety [Not Recovered/Not Resolved]
  - Drug hypersensitivity [Unknown]
  - Abdominal distension [Unknown]
  - Drug intolerance [Unknown]
